FAERS Safety Report 10020762 (Version 1)
Quarter: 2013Q4

REPORT INFORMATION
  Report Type: Spontaneous
  Country: US (occurrence: None)
  Receive Date: 20131203
  Receipt Date: 20131203
  Transmission Date: 20140711
  Serious: Yes (Other)
  Sender: FDA-Public Use
  Company Number: 2013P1021422

PATIENT
  Sex: 0

DRUGS (1)
  1. LEVETIRACTAM [Suspect]
     Indication: EPILEPSY
     Route: 042

REACTIONS (2)
  - Electrocardiogram QT prolonged [None]
  - Electrocardiogram QT prolonged [None]
